FAERS Safety Report 10686450 (Version 2)
Quarter: 2015Q1

REPORT INFORMATION
  Report Type: Spontaneous
  Country: KZ (occurrence: KZ)
  Receive Date: 20141231
  Receipt Date: 20150203
  Transmission Date: 20150720
  Serious: Yes (Other)
  Sender: FDA-Public Use
  Company Number: KZ-GLAXOSMITHKLINE INC.-KZ2014GSK043748

PATIENT
  Age: 34 Year
  Sex: Male

DRUGS (7)
  1. PARACETAMOL [Suspect]
     Active Substance: ACETAMINOPHEN
     Indication: PREMEDICATION
     Dosage: 2 UNK, Z
     Route: 048
     Dates: start: 20140916, end: 20140916
  2. NISE [Concomitant]
     Dosage: UNK
  3. SUPRASTIN [Suspect]
     Active Substance: CHLOROPYRAMINE HYDROCHLORIDE
     Indication: PREMEDICATION
     Dosage: 1 %, UNK
  4. BENLYSTA [Suspect]
     Active Substance: BELIMUMAB
     Indication: SYSTEMIC LUPUS ERYTHEMATOSUS
     Dosage: 800 MG, Z
     Route: 051
     Dates: start: 20141116, end: 20150116
  5. METIPRED [Concomitant]
     Active Substance: METHYLPREDNISOLONE
     Dosage: UNK
  6. NIMESIL [Concomitant]
     Active Substance: NIMESULIDE
     Dosage: UNK
  7. MERTENIL [Concomitant]
     Dosage: 1 UNK, QD

REACTIONS (1)
  - Pancytopenia [Unknown]

NARRATIVE: CASE EVENT DATE: 20141105
